FAERS Safety Report 6829060-5 (Version None)
Quarter: 2010Q3

REPORT INFORMATION
  Report Type: 
  Country: None (occurrence: None)
  Receive Date: 20100709
  Receipt Date: 20070227
  Transmission Date: 20110219
  Serious: Yes (Other)
  Sender: FDA-Public Use
  Company Number: US-PFIZER INC-2007016178

PATIENT
  Age: 59 Year
  Sex: Female
  Weight: 88.5 kg

DRUGS (6)
  1. CHANTIX [Suspect]
     Indication: SMOKING CESSATION THERAPY
     Route: 048
     Dates: start: 20070218
  2. GEODON [Concomitant]
  3. LEXAPRO [Concomitant]
  4. SIMVASTATIN [Concomitant]
  5. DIAZEPAM [Concomitant]
  6. AMBIEN [Concomitant]

REACTIONS (7)
  - ABNORMAL DREAMS [None]
  - CHILLS [None]
  - DECREASED APPETITE [None]
  - DYSGEUSIA [None]
  - DYSPNOEA [None]
  - MALAISE [None]
  - NAUSEA [None]
